FAERS Safety Report 15908007 (Version 3)
Quarter: 2019Q2

REPORT INFORMATION
  Report Type: Spontaneous
  Country: US (occurrence: US)
  Receive Date: 20190204
  Receipt Date: 20190405
  Transmission Date: 20190711
  Serious: Yes (Other)
  Sender: FDA-Public Use
  Company Number: US-ASTRAZENECA-2018SF13841

PATIENT
  Age: 756 Month
  Sex: Male
  Weight: 131.1 kg

DRUGS (29)
  1. NEXIUM [Suspect]
     Active Substance: ESOMEPRAZOLE MAGNESIUM
     Indication: GASTROOESOPHAGEAL REFLUX DISEASE
     Route: 048
     Dates: start: 1997, end: 200903
  2. CLONIDINE. [Concomitant]
     Active Substance: CLONIDINE
  3. BAYER ASPIRIN [Concomitant]
     Active Substance: ASPIRIN
     Indication: HEADACHE
  4. DIGOXIN. [Concomitant]
     Active Substance: DIGOXIN
  5. NOVOLOG [Concomitant]
     Active Substance: INSULIN ASPART
  6. TRICOR [Concomitant]
     Active Substance: FENOFIBRATE
  7. METANX [Concomitant]
     Active Substance: LEVOMEFOLATE CALCIUM\METHYLCOBALAMIN\PYRIDOXAL PHOSPHATE ANHYDROUS
  8. AMBIEN [Concomitant]
     Active Substance: ZOLPIDEM TARTRATE
  9. CARDURA [Concomitant]
     Active Substance: DOXAZOSIN MESYLATE
  10. PRAVASTATIN SODIUM. [Concomitant]
     Active Substance: PRAVASTATIN SODIUM
  11. PROGRAF [Concomitant]
     Active Substance: TACROLIMUS\TACROLIMUS ANHYDROUS
  12. LOVAZA [Concomitant]
     Active Substance: OMEGA-3-ACID ETHYL ESTERS
  13. TEKTURNA [Concomitant]
     Active Substance: ALISKIREN HEMIFUMARATE
  14. NEXIUM [Suspect]
     Active Substance: ESOMEPRAZOLE MAGNESIUM
     Indication: GASTROOESOPHAGEAL REFLUX DISEASE
     Route: 048
     Dates: start: 199707, end: 200903
  15. NEXIUM [Suspect]
     Active Substance: ESOMEPRAZOLE MAGNESIUM
     Indication: GASTROOESOPHAGEAL REFLUX DISEASE
     Route: 048
     Dates: start: 20080226
  16. ASPIRIN. [Concomitant]
     Active Substance: ASPIRIN
  17. BAYER ASPIRIN [Concomitant]
     Active Substance: ASPIRIN
     Indication: PYREXIA
  18. PLAVIX [Concomitant]
     Active Substance: CLOPIDOGREL BISULFATE
  19. NEXIUM [Suspect]
     Active Substance: ESOMEPRAZOLE MAGNESIUM
     Indication: GASTROOESOPHAGEAL REFLUX DISEASE
     Route: 048
     Dates: start: 2006, end: 2009
  20. AMOXICILLIN. [Concomitant]
     Active Substance: AMOXICILLIN
  21. VITAMINS NOS [Concomitant]
     Active Substance: VITAMINS
     Indication: ROUTINE HEALTH MAINTENANCE
  22. MYFORTIC [Concomitant]
     Active Substance: MYCOPHENOLATE SODIUM
  23. FINASTERIDE. [Concomitant]
     Active Substance: FINASTERIDE
  24. METOPROLOL TARTRATE. [Concomitant]
     Active Substance: METOPROLOL TARTRATE
  25. NIACIN. [Concomitant]
     Active Substance: NIACIN
  26. VIAGRA [Concomitant]
     Active Substance: SILDENAFIL CITRATE
  27. FAMOTIDINE. [Concomitant]
     Active Substance: FAMOTIDINE
  28. LISINOPRIL. [Concomitant]
     Active Substance: LISINOPRIL
  29. NITROSTAT [Concomitant]
     Active Substance: NITROGLYCERIN

REACTIONS (6)
  - Chronic kidney disease [Not Recovered/Not Resolved]
  - Hyperparathyroidism [Unknown]
  - Nephrogenic anaemia [Unknown]
  - Acute kidney injury [Not Recovered/Not Resolved]
  - End stage renal disease [Unknown]
  - Renal failure [Not Recovered/Not Resolved]

NARRATIVE: CASE EVENT DATE: 200805
